FAERS Safety Report 9110977 (Version 1)
Quarter: 2013Q1

REPORT INFORMATION
  Report Type: Spontaneous
  Country: US (occurrence: US)
  Receive Date: 20130219
  Receipt Date: 20130219
  Transmission Date: 20140127
  Serious: No
  Sender: FDA-Public Use
  Company Number: US-BRISTOL-MYERS SQUIBB COMPANY-16862351

PATIENT
  Age: 62 Year
  Sex: Male
  Weight: 99.77 kg

DRUGS (19)
  1. ABATACEPT SUBQ INJECTION 125MG/ML [Suspect]
     Indication: RHEUMATOID ARTHRITIS
     Dosage: STRENGTH:ORENCIA 125 MG
     Route: 058
     Dates: start: 201203
  2. CLONAZEPAM [Concomitant]
  3. COLCHICINE [Concomitant]
  4. CYMBALTA [Concomitant]
  5. FOLIC ACID [Concomitant]
  6. GLYBURIDE + METFORMIN HCL [Concomitant]
  7. HYDROMORPHONE [Concomitant]
  8. LISINOPRIL [Concomitant]
  9. LOVAZA [Concomitant]
  10. MULTIVITAMIN [Concomitant]
  11. NIASPAN [Concomitant]
  12. NITROGLYCERINE [Concomitant]
  13. NOVOLOG [Concomitant]
  14. ONDANSETRON [Concomitant]
  15. OPANA [Concomitant]
  16. PREDNISONE [Concomitant]
  17. REGLAN [Concomitant]
  18. ROPINIROLE [Concomitant]
  19. VITAMIN D [Concomitant]

REACTIONS (1)
  - Arthralgia [Not Recovered/Not Resolved]
